FAERS Safety Report 9217021 (Version 4)
Quarter: 2013Q3

REPORT INFORMATION
  Report Type: Spontaneous
  Country: US (occurrence: US)
  Receive Date: 20130408
  Receipt Date: 20130728
  Transmission Date: 20140515
  Serious: No
  Sender: FDA-Public Use
  Company Number: US-009507513-1304USA003184

PATIENT
  Age: 23 Year
  Sex: Female

DRUGS (2)
  1. NEXPLANON [Suspect]
     Indication: CONTRACEPTION
     Dosage: 1 ROD
     Route: 059
     Dates: start: 20120312, end: 20130404
  2. NEXPLANON [Suspect]
     Dosage: UNK
     Route: 059

REACTIONS (4)
  - Implant site infection [Unknown]
  - Medical device complication [Unknown]
  - Medical device complication [Unknown]
  - No adverse event [Unknown]
